FAERS Safety Report 20838526 (Version 4)
Quarter: 2022Q3

REPORT INFORMATION
  Report Type: Spontaneous
  Country: US (occurrence: US)
  Receive Date: 20220517
  Receipt Date: 20220909
  Transmission Date: 20221027
  Serious: Yes (Death, Other)
  Sender: FDA-Public Use
  Company Number: US-PFIZER INC-202200690564

PATIENT
  Age: 78 Year
  Sex: Female
  Weight: 53.98 kg

DRUGS (1)
  1. XELJANZ XR [Suspect]
     Active Substance: TOFACITINIB CITRATE
     Indication: Rheumatoid arthritis
     Dosage: 11 MG, DAILY
     Route: 048
     Dates: start: 2015, end: 2022

REACTIONS (2)
  - Lung neoplasm malignant [Fatal]
  - Gait disturbance [Unknown]

NARRATIVE: CASE EVENT DATE: 20220201
